FAERS Safety Report 11413853 (Version 1)
Quarter: 2015Q3

REPORT INFORMATION
  Report Type: Spontaneous
  Country: CA (occurrence: CA)
  Receive Date: 20150824
  Receipt Date: 20150824
  Transmission Date: 20151125
  Serious: Yes (Other)
  Sender: FDA-Public Use
  Company Number: CA-AMEDRA PHARMACEUTICALS LLC-2015AMD00173

PATIENT

DRUGS (3)
  1. BUPIVACAINE [Suspect]
     Active Substance: BUPIVACAINE
     Indication: POSTOPERATIVE ANALGESIA
     Dosage: 600 MG OR 1,200 MG, OVER 48 HOURS
     Route: 014
  2. EPINEPHRINE. [Suspect]
     Active Substance: EPINEPHRINE
     Indication: POSTOPERATIVE ANALGESIA
     Dosage: 1:200,000, AT 5 ML/HR OVER 48 HOURS
     Route: 014
  3. LIDOCAINE 1% [Concomitant]
     Active Substance: LIDOCAINE

REACTIONS (4)
  - Pain [Unknown]
  - Chondrolysis [Unknown]
  - Crepitations [Unknown]
  - Musculoskeletal stiffness [Unknown]
